FAERS Safety Report 21087144 (Version 1)
Quarter: 2022Q3

REPORT INFORMATION
  Report Type: Spontaneous
  Country: US (occurrence: None)
  Receive Date: 20220714
  Receipt Date: 20220714
  Transmission Date: 20221027
  Serious: No
  Sender: FDA-Public Use
  Company Number: None

PATIENT
  Age: 39 Year
  Sex: Female

DRUGS (1)
  1. OCALIVA [Suspect]
     Active Substance: OBETICHOLIC ACID
     Indication: Primary biliary cholangitis
     Dosage: FREQUENCY : DAILY;?
     Route: 048
     Dates: start: 20220413, end: 20220417

REACTIONS (3)
  - Rash [None]
  - Blister [None]
  - Pain [None]

NARRATIVE: CASE EVENT DATE: 20220617
